FAERS Safety Report 4334627-2 (Version None)
Quarter: 2004Q2

REPORT INFORMATION
  Report Type: 
  Country: None (occurrence: None)
  Receive Date: 20040407
  Receipt Date: 20040318
  Transmission Date: 20050107
  Serious: Yes (Hospitalization, Other)
  Sender: FDA-Public Use
  Company Number: US-MERCK-0403USA01650

PATIENT
  Age: 43 Year
  Sex: Male
  Weight: 103 kg

DRUGS (3)
  1. PROTONIX [Concomitant]
     Route: 048
     Dates: start: 20011113
  2. VIOXX [Suspect]
     Indication: PAIN
     Route: 048
     Dates: start: 20030102
  3. EFFEXOR XR [Concomitant]
     Route: 048
     Dates: start: 20010615

REACTIONS (1)
  - DIVERTICULAR PERFORATION [None]
